FAERS Safety Report 14284170 (Version 1)
Quarter: 2017Q4

REPORT INFORMATION
  Report Type: Spontaneous
  Country: BE (occurrence: BE)
  Receive Date: 20171214
  Receipt Date: 20171214
  Transmission Date: 20180321
  Serious: Yes (Hospitalization, Other)
  Sender: FDA-Public Use
  Company Number: BE-BAYER-2017-234339

PATIENT
  Sex: Male

DRUGS (3)
  1. STIVARGA [Suspect]
     Active Substance: REGORAFENIB
     Indication: PSEUDOMYXOMA PERITONEI
     Dosage: 20 MG, QD
     Dates: start: 201710, end: 2017
  2. ASAFLOW [Concomitant]
     Active Substance: ASPIRIN
     Dosage: 80 MG, QD
  3. PANCRELIPASE. [Concomitant]
     Active Substance: PANCRELIPASE
     Dosage: UNK

REACTIONS (6)
  - Gastrointestinal fistula [None]
  - Fatigue [None]
  - Gastric fistula [None]
  - Tumour necrosis [None]
  - Erythema [None]
  - Rash [None]
